FAERS Safety Report 23749058 (Version 3)
Quarter: 2024Q2

REPORT INFORMATION
  Report Type: Spontaneous
  Country: US (occurrence: US)
  Receive Date: 20240416
  Receipt Date: 20240605
  Transmission Date: 20240717
  Serious: Yes (Hospitalization, Other)
  Sender: FDA-Public Use
  Company Number: US-JNJFOC-20240440188

PATIENT
  Sex: Female

DRUGS (2)
  1. OPSUMIT [Suspect]
     Active Substance: MACITENTAN
     Indication: Product used for unknown indication
     Route: 048
  2. OXYGEN [Concomitant]
     Active Substance: OXYGEN
     Dosage: 5 LITERS OF OXYGEN

REACTIONS (10)
  - Hospitalisation [Unknown]
  - Loss of consciousness [Unknown]
  - Terminal state [Unknown]
  - Lung operation [Unknown]
  - Lung transplant [Unknown]
  - Illness [Unknown]
  - Memory impairment [Unknown]
  - Lip injury [Unknown]
  - Oxygen therapy [Unknown]
  - Product dose omission issue [Unknown]
